FAERS Safety Report 4625531-0 (Version None)
Quarter: 2005Q2

REPORT INFORMATION
  Report Type: 
  Country: None (occurrence: None)
  Receive Date: 20050401
  Receipt Date: 20050316
  Transmission Date: 20051028
  Serious: Yes (Hospitalization)
  Sender: FDA-Public Use
  Company Number: HQWYE160816MAR05

PATIENT
  Sex: Female
  Weight: 51 kg

DRUGS (3)
  1. ENBREL [Suspect]
     Indication: RHEUMATOID ARTHRITIS
     Route: 058
  2. METHYLPREDNISOLONE SODIUM SUCCINATE [Concomitant]
     Indication: RHEUMATOID ARTHRITIS
  3. SULFASALAZINE [Concomitant]
     Indication: RHEUMATOID ARTHRITIS

REACTIONS (8)
  - ABDOMINAL PAIN [None]
  - COUGH [None]
  - DYSPNOEA [None]
  - MALAISE [None]
  - PALPITATIONS [None]
  - PYREXIA [None]
  - RHINITIS [None]
  - URINARY TRACT INFECTION [None]
